FAERS Safety Report 8604443-1 (Version None)
Quarter: 2012Q3

REPORT INFORMATION
  Report Type: 
  Country: None (occurrence: None)
  Receive Date: 20120820
  Receipt Date: 20120807
  Transmission Date: 20120928
  Serious: Yes (Hospitalization, Other)
  Sender: FDA-Public Use
  Company Number: GB-JNJFOC-20090808488

PATIENT
  Age: 40 Year
  Sex: Male
  Weight: 105 kg

DRUGS (13)
  1. RISPERIDONE [Suspect]
     Dosage: 4 MG DAILY
     Route: 065
  2. DULOXETINE HYDROCHLORIDE [Suspect]
     Indication: PRODUCT USED FOR UNKNOWN INDICATION
     Route: 048
  3. MIRTAZAPINE [Suspect]
     Indication: PRODUCT USED FOR UNKNOWN INDICATION
     Route: 065
  4. EFFEXOR [Concomitant]
     Indication: DEPRESSION
     Route: 048
  5. RISPERIDONE [Suspect]
     Route: 065
  6. ABILIFY [Suspect]
     Indication: SCHIZOAFFECTIVE DISORDER
     Route: 048
     Dates: start: 20080401
  7. QUETIAPINE FUMARATE [Suspect]
     Indication: PRODUCT USED FOR UNKNOWN INDICATION
     Route: 065
  8. ABILIFY [Suspect]
     Indication: METABOLIC SYNDROME
     Route: 048
     Dates: start: 20080401
  9. DRUG USED IN DIABETES [Concomitant]
     Indication: TYPE 2 DIABETES MELLITUS
     Route: 048
  10. DULOXETINE HYDROCHLORIDE [Suspect]
     Route: 048
  11. VALPROATE SODIUM [Suspect]
     Indication: PRODUCT USED FOR UNKNOWN INDICATION
     Route: 065
  12. LITHIUM [Concomitant]
     Indication: PRODUCT USED FOR UNKNOWN INDICATION
     Route: 048
  13. RISPERIDONE [Suspect]
     Indication: MANIA
     Route: 065

REACTIONS (9)
  - EXTRAPYRAMIDAL DISORDER [None]
  - METABOLIC SYNDROME [None]
  - HYPOTHYROIDISM [None]
  - LIVER FUNCTION TEST ABNORMAL [None]
  - SCHIZOAFFECTIVE DISORDER [None]
  - WEIGHT INCREASED [None]
  - PSYCHOTIC DISORDER [None]
  - BIPOLAR DISORDER [None]
  - DEPRESSION [None]
